FAERS Safety Report 21670115 (Version 1)
Quarter: 2022Q4

REPORT INFORMATION
  Report Type: Other
  Country: HR (occurrence: HR)
  Receive Date: 20221201
  Receipt Date: 20221201
  Transmission Date: 20230113
  Serious: Yes (Hospitalization)
  Sender: FDA-Public Use
  Company Number: HR-Genus_Lifesciences-USA-POI0580202200181

PATIENT
  Age: 56 Year
  Sex: Female

DRUGS (1)
  1. OXYCODONE HYDROCHLORIDE [Suspect]
     Active Substance: OXYCODONE HYDROCHLORIDE
     Indication: Back pain
     Route: 048
     Dates: start: 2018, end: 2021

REACTIONS (1)
  - Oromandibular dystonia [Recovering/Resolving]

NARRATIVE: CASE EVENT DATE: 20220101
